FAERS Safety Report 23820201 (Version 2)
Quarter: 2025Q2

REPORT INFORMATION
  Report Type: Spontaneous
  Country: FI (occurrence: FI)
  Receive Date: 20240506
  Receipt Date: 20250605
  Transmission Date: 20250717
  Serious: Yes (Other)
  Sender: NOVEN
  Company Number: FI-NOVEN PHARMACEUTICALS, INC.-2024-NOV-FI000511

PATIENT
  Age: 26 Year
  Sex: Female

DRUGS (1)
  1. METHYLPHENIDATE [Suspect]
     Active Substance: METHYLPHENIDATE
     Indication: Attention deficit hyperactivity disorder
     Route: 042

REACTIONS (10)
  - Histiocytosis [Unknown]
  - Swelling of eyelid [Unknown]
  - Chronic hepatitis C [Unknown]
  - Malnutrition [Unknown]
  - Pulmonary hypertension [Unknown]
  - Retinopathy [Unknown]
  - Immunoglobulin G4 related disease [Unknown]
  - Pachymeningitis [Unknown]
  - Amyloidosis [Unknown]
  - Normocytic anaemia [Unknown]
